FAERS Safety Report 6338844-1 (Version None)
Quarter: 2009Q3

REPORT INFORMATION
  Report Type: 
  Country: None (occurrence: None)
  Receive Date: 20090903
  Receipt Date: 20090825
  Transmission Date: 20100115
  Serious: Yes (Life-Threatening)
  Sender: FDA-Public Use
  Company Number: PL-JNJFOC-20090808170

PATIENT
  Sex: Female
  Weight: 70.5 kg

DRUGS (4)
  1. REMICADE [Suspect]
     Route: 042
  2. REMICADE [Suspect]
     Dosage: 2ND INFUSION
     Route: 042
  3. REMICADE [Suspect]
     Indication: CROHN'S DISEASE
     Dosage: 1ST INFUSION
     Route: 042
  4. COHYDRON [Concomitant]
     Indication: PREMEDICATION
     Route: 042

REACTIONS (8)
  - ANAPHYLACTIC REACTION [None]
  - FEELING HOT [None]
  - INFUSION RELATED REACTION [None]
  - LACRIMATION INCREASED [None]
  - LIVIDITY [None]
  - PERIPHERAL COLDNESS [None]
  - RESPIRATORY RATE INCREASED [None]
  - RHINORRHOEA [None]
